FAERS Safety Report 18973456 (Version 1)
Quarter: 2021Q1

REPORT INFORMATION
  Report Type: Spontaneous
  Country: IN (occurrence: IN)
  Receive Date: 20210305
  Receipt Date: 20210305
  Transmission Date: 20210420
  Serious: Yes (Other)
  Sender: FDA-Public Use
  Company Number: IN-PFIZER INC-2020293237

PATIENT
  Age: 69 Year
  Sex: Female

DRUGS (3)
  1. PALBACE [Suspect]
     Active Substance: PALBOCICLIB
     Indication: BREAST CANCER METASTATIC
     Dosage: 100 MG, ONCE DIALY X21 DAY
     Route: 048
     Dates: start: 20200327
  2. LETROZOLE. [Concomitant]
     Active Substance: LETROZOLE
     Dosage: 2.5 MG, 1X/DAY
     Dates: start: 20200327
  3. PALBACE [Suspect]
     Active Substance: PALBOCICLIB
     Dosage: 100 UNK
     Route: 048
     Dates: start: 20200731

REACTIONS (5)
  - Asthenia [Recovering/Resolving]
  - Diabetes mellitus [Unknown]
  - Restlessness [Recovering/Resolving]
  - Pleural effusion [Unknown]
  - Arthralgia [Unknown]
